FAERS Safety Report 5020459-9 (Version None)
Quarter: 2006Q2

REPORT INFORMATION
  Report Type: 
  Country: None (occurrence: None)
  Receive Date: 20060607
  Receipt Date: 20060522
  Transmission Date: 20061013
  Serious: Yes (Hospitalization)
  Sender: FDA-Public Use
  Company Number: US-SANOFI-SYNTHELABO-A03200603248

PATIENT
  Sex: Male
  Weight: 83.9 kg

DRUGS (3)
  1. LEUCOVORIN [Suspect]
     Indication: COLON CANCER
     Route: 042
     Dates: start: 20060424, end: 20060508
  2. FLUOROURACIL [Suspect]
     Indication: COLON CANCER
     Route: 042
     Dates: start: 20060424, end: 20060508
  3. ELOXATIN [Suspect]
     Indication: COLON CANCER
     Route: 042
     Dates: start: 20060508, end: 20060508

REACTIONS (2)
  - HEPATITIS [None]
  - PANCREATITIS [None]
